FAERS Safety Report 6590440-7 (Version None)
Quarter: 2010Q1

REPORT INFORMATION
  Report Type: 
  Country: None (occurrence: None)
  Receive Date: 20100219
  Receipt Date: 20100212
  Transmission Date: 20100710
  Serious: Yes (Disabling, Other)
  Sender: FDA-Public Use
  Company Number: FR-ASTRAZENECA-2010SE06788

PATIENT
  Age: 64 Year
  Sex: Male

DRUGS (5)
  1. CASODEX [Suspect]
     Indication: PROSTATE CANCER
     Route: 048
     Dates: start: 20060101, end: 20091001
  2. ZOCOR [Concomitant]
  3. ASPEGIC 1000 [Concomitant]
  4. FLUDEX [Concomitant]
  5. CERIS [Concomitant]
     Dates: start: 20090101

REACTIONS (1)
  - MOTOR DYSFUNCTION [None]
